FAERS Safety Report 7623565-5 (Version None)
Quarter: 2011Q3

REPORT INFORMATION
  Report Type: 
  Country: None (occurrence: None)
  Receive Date: 20110720
  Receipt Date: 20110705
  Transmission Date: 20111222
  Serious: Yes (Hospitalization, Other)
  Sender: FDA-Public Use
  Company Number: AR-SANOFI-AVENTIS-2011SA044208

PATIENT
  Age: 66 Year
  Sex: Female
  Weight: 100 kg

DRUGS (9)
  1. CLOPIDOGREL [Concomitant]
  2. INSULIN [Concomitant]
  3. DIGOXIN [Concomitant]
     Dates: end: 20110322
  4. CARVEDILOL [Concomitant]
  5. SIMVASTATIN [Concomitant]
  6. FUROSEMIDE [Concomitant]
  7. ASPIRIN [Concomitant]
  8. DRONEDARONE HCL [Suspect]
     Indication: ATRIAL FIBRILLATION
     Route: 048
     Dates: start: 20110322
  9. ACENOCOUMAROL [Concomitant]

REACTIONS (4)
  - RENAL FAILURE ACUTE [None]
  - CARDIAC ARREST [None]
  - CARDIAC FAILURE [None]
  - BRADYCARDIA [None]
